FAERS Safety Report 13303201 (Version 1)
Quarter: 2017Q1

REPORT INFORMATION
  Report Type: Spontaneous
  Country: US (occurrence: US)
  Receive Date: 20170307
  Receipt Date: 20170307
  Transmission Date: 20170428
  Serious: No
  Sender: FDA-Public Use
  Company Number: US-MYLANLABS-2016M1047304

PATIENT
  Age: 60 Year
  Sex: Female

DRUGS (2)
  1. OLUX-E [Suspect]
     Active Substance: CLOBETASOL PROPIONATE
     Indication: PSORIASIS
     Dosage: STARTED 5 -7 YEARS AGO, DAILY
     Route: 061
  2. OLUX-E [Suspect]
     Active Substance: CLOBETASOL PROPIONATE
     Indication: SCAB

REACTIONS (2)
  - Hair growth abnormal [Not Recovered/Not Resolved]
  - Alopecia [Not Recovered/Not Resolved]
